FAERS Safety Report 4912139-2 (Version None)
Quarter: 2006Q1

REPORT INFORMATION
  Report Type: 
  Country: None (occurrence: None)
  Receive Date: 20060215
  Receipt Date: 20050728
  Transmission Date: 20060701
  Serious: No
  Sender: FDA-Public Use
  Company Number: US-GLAXOSMITHKLINE-A0568338A

PATIENT

DRUGS (1)
  1. VALTREX [Suspect]
     Route: 048
     Dates: start: 19990101, end: 19990101

REACTIONS (2)
  - FAECES DISCOLOURED [None]
  - VOMITING [None]
